FAERS Safety Report 4289555-8 (Version None)
Quarter: 2004Q1

REPORT INFORMATION
  Report Type: 
  Country: None (occurrence: None)
  Receive Date: 20040203
  Receipt Date: 20030409
  Transmission Date: 20041129
  Serious: Yes (Other)
  Sender: FDA-Public Use
  Company Number: 200316265BWH

PATIENT
  Age: 55 Year
  Sex: Female
  Weight: 71.2147 kg

DRUGS (3)
  1. AVELOX [Suspect]
     Indication: LUNG INFECTION
     Dosage: 400 MG, TOTAL DAILY, ORAL
     Route: 048
     Dates: start: 20030405
  2. PREMPHASE 14/14 [Concomitant]
  3. TYLENOL (CAPLET) [Concomitant]

REACTIONS (7)
  - DIARRHOEA [None]
  - DYSPNOEA [None]
  - HYPERSENSITIVITY [None]
  - RASH GENERALISED [None]
  - SWELLING [None]
  - SWELLING FACE [None]
  - URTICARIA [None]
